FAERS Safety Report 7390027-2 (Version None)
Quarter: 2011Q2

REPORT INFORMATION
  Report Type: 
  Country: None (occurrence: None)
  Receive Date: 20110401
  Receipt Date: 20110323
  Transmission Date: 20111010
  Serious: Yes (Other)
  Sender: FDA-Public Use
  Company Number: FR-ASTRAZENECA-2011SE17184

PATIENT
  Age: 26 Year
  Sex: Female

DRUGS (4)
  1. PARACETAMOL [Concomitant]
     Indication: MIGRAINE
     Dosage: AS REQUIRED
  2. ZOMIG [Suspect]
     Indication: MIGRAINE
     Route: 048
     Dates: start: 20100905, end: 20100908
  3. IBUPROFEN [Concomitant]
     Indication: MIGRAINE
     Dosage: AS REQUIRED
  4. ASPEGIC 325 [Concomitant]
     Indication: MIGRAINE
     Dosage: AS REQUIRED

REACTIONS (2)
  - DRUG EXPOSURE DURING PREGNANCY [None]
  - ECTOPIC PREGNANCY [None]
